FAERS Safety Report 10487498 (Version 2)
Quarter: 2014Q4

REPORT INFORMATION
  Report Type: Report from Study
  Country: CN (occurrence: CN)
  Receive Date: 20141001
  Receipt Date: 20141001
  Transmission Date: 20150528
  Serious: Yes (Hospitalization)
  Sender: FDA-Public Use
  Company Number: CN-ASTELLAS-2014US004012

PATIENT
  Age: 56 Year
  Sex: Male

DRUGS (1)
  1. ERLOTINIB [Suspect]
     Active Substance: ERLOTINIB
     Indication: NON-SMALL CELL LUNG CANCER
     Route: 048
     Dates: start: 20130531

REACTIONS (12)
  - Dysarthria [Recovering/Resolving]
  - Immunodeficiency [Recovering/Resolving]
  - Chest X-ray abnormal [Unknown]
  - Dysphonia [Unknown]
  - Condition aggravated [Unknown]
  - Nasopharyngitis [Recovering/Resolving]
  - Toothache [Unknown]
  - Mental impairment [Recovering/Resolving]
  - Lung disorder [Unknown]
  - Gait disturbance [Recovering/Resolving]
  - Cough [Unknown]
  - Discomfort [Recovering/Resolving]

NARRATIVE: CASE EVENT DATE: 201310
